APPROVED DRUG PRODUCT: TESSALON
Active Ingredient: BENZONATATE
Strength: 200MG **Federal Register determination that product was not discontinued or withdrawn for safety or effectiveness reasons**
Dosage Form/Route: CAPSULE;ORAL
Application: N011210 | Product #003
Applicant: PFIZER INC
Approved: Jun 25, 1999 | RLD: Yes | RS: No | Type: DISCN